FAERS Safety Report 17075979 (Version 3)
Quarter: 2020Q2

REPORT INFORMATION
  Report Type: Spontaneous
  Country: US (occurrence: US)
  Receive Date: 20191126
  Receipt Date: 20200601
  Transmission Date: 20200713
  Serious: Yes (Hospitalization, Other)
  Sender: FDA-Public Use
  Company Number: US-GILEAD-2019-0439511

PATIENT
  Sex: Male

DRUGS (98)
  1. NORVIR [Concomitant]
     Active Substance: RITONAVIR
  2. TIVICAY [Concomitant]
     Active Substance: DOLUTEGRAVIR SODIUM
  3. EDURANT [Concomitant]
     Active Substance: RILPIVIRINE HYDROCHLORIDE
  4. FAMOTIDINE. [Concomitant]
     Active Substance: FAMOTIDINE
  5. PROMETHAZINE [Concomitant]
     Active Substance: PROMETHAZINE HYDROCHLORIDE
  6. ALPRAZOLAM. [Concomitant]
     Active Substance: ALPRAZOLAM
  7. ACETAMINOPHEN;CODEINE [Concomitant]
     Active Substance: ACETAMINOPHEN\CODEINE PHOSPHATE
  8. POLYETHYLENE GLYCOL [Concomitant]
     Active Substance: POLYETHYLENE GLYCOLS
  9. MAGNESIUM SULFATE IN DEXTROSE [Concomitant]
     Active Substance: MAGNESIUM SULFATE
  10. TRUVADA [Suspect]
     Active Substance: EMTRICITABINE\TENOFOVIR DISOPROXIL FUMARATE
     Dosage: 1 DOSAGE FORM, QD
     Route: 048
     Dates: start: 201401, end: 201402
  11. ATRIPLA [Suspect]
     Active Substance: EFAVIRENZ\EMTRICITABINE\TENOFOVIR DISOPROXIL FUMARATE
     Indication: HIV INFECTION
     Dosage: UNK
     Route: 065
     Dates: start: 2003, end: 2005
  12. FERROUS SULFATE. [Concomitant]
     Active Substance: FERROUS SULFATE
  13. CYPROHEPTADINE. [Concomitant]
     Active Substance: CYPROHEPTADINE
  14. VITAMIN D2 [Concomitant]
     Active Substance: ERGOCALCIFEROL
  15. DICLOFENAC [Concomitant]
     Active Substance: DICLOFENAC
  16. DILTIAZEM. [Concomitant]
     Active Substance: DILTIAZEM
  17. SULFAMETHOXAZOLE;TRIMETHOPRIM [Concomitant]
     Active Substance: SULFAMETHOXAZOLE\TRIMETHOPRIM
  18. METRONIDAZOLE. [Concomitant]
     Active Substance: METRONIDAZOLE
  19. CLOTRIMAZOLE. [Concomitant]
     Active Substance: CLOTRIMAZOLE
  20. METHYLPREDNISOLONE. [Concomitant]
     Active Substance: METHYLPREDNISOLONE
  21. TAMIFLU [Concomitant]
     Active Substance: OSELTAMIVIR PHOSPHATE
  22. CIALIS [Concomitant]
     Active Substance: TADALAFIL
  23. MUCINEX [Concomitant]
     Active Substance: GUAIFENESIN
  24. TRUVADA [Suspect]
     Active Substance: EMTRICITABINE\TENOFOVIR DISOPROXIL FUMARATE
     Dosage: 1 DOSAGE FORM, QD
     Route: 048
     Dates: start: 201202, end: 201212
  25. DESCOVY [Concomitant]
     Active Substance: EMTRICITABINE\TENOFOVIR ALAFENAMIDE FUMARATE
  26. PREZISTA [Concomitant]
     Active Substance: DARUNAVIR ETHANOLATE
  27. BENZOYL PEROXIDE. [Concomitant]
     Active Substance: BENZOYL PEROXIDE
  28. KENALOG [Concomitant]
     Active Substance: TRIAMCINOLONE ACETONIDE
  29. MULTIVITAMIN WITH MINERALS [Concomitant]
     Active Substance: MINERALS\VITAMINS
  30. PRILOSEC [Concomitant]
     Active Substance: OMEPRAZOLE MAGNESIUM
  31. WESTCORT [Concomitant]
     Active Substance: HYDROCORTISONE VALERATE
  32. NASONEX [Concomitant]
     Active Substance: MOMETASONE FUROATE
  33. FLONASE [Concomitant]
     Active Substance: FLUTICASONE PROPIONATE
  34. NEXIUM [Concomitant]
     Active Substance: ESOMEPRAZOLE MAGNESIUM
  35. DEXTROAMPHET SACCHARAT, AMPHET ASPARTATE, DEXTROAMPHET SULFATE AND AMPHET SULFAT [Concomitant]
     Active Substance: AMPHETAMINE ASPARTATE\AMPHETAMINE SULFATE\DEXTROAMPHETAMINE SACCHARATE\DEXTROAMPHETAMINE SULFATE
  36. PROBIOTIC ACIDOPHILUS [LACTOBACILLUS ACIDOPHILUS] [Concomitant]
  37. DEXTROAMPHETAMINE, AMPHETAMINE [Concomitant]
  38. MINERALS NOS;VITAMINS NOS [Concomitant]
     Active Substance: MINERALS\VITAMINS
  39. TDAP [Concomitant]
     Active Substance: TETANUS TOXOID, REDUCED DIPHTHERIA TOXOID AND ACELLULAR PERTUSSIS VACCINE ADSORBED, TDAP
     Dosage: UNK
     Dates: start: 2013, end: 2013
  40. DILAUDID [Concomitant]
     Active Substance: HYDROMORPHONE HYDROCHLORIDE
  41. TRUVADA [Suspect]
     Active Substance: EMTRICITABINE\TENOFOVIR DISOPROXIL FUMARATE
     Indication: HIV INFECTION
     Dosage: 1 DOSAGE FORM, QD
     Route: 048
     Dates: start: 20100526, end: 201008
  42. DOXYCYCLINE. [Concomitant]
     Active Substance: DOXYCYCLINE
  43. ALBUTEROL HFA [Concomitant]
     Active Substance: ALBUTEROL SULFATE
  44. HYDROCHLOROTHIAZIDE. [Concomitant]
     Active Substance: HYDROCHLOROTHIAZIDE
  45. HYDROCORTISONE. [Concomitant]
     Active Substance: HYDROCORTISONE
  46. NEPRO [NUTRIENTS NOS] [Concomitant]
  47. ATORVASTATIN [Concomitant]
     Active Substance: ATORVASTATIN
  48. GENVOYA [Concomitant]
     Active Substance: COBICISTAT\ELVITEGRAVIR\EMTRICITABINE\TENOFOVIR ALAFENAMIDE FUMARATE
  49. TRIUMEQ [Concomitant]
     Active Substance: ABACAVIR SULFATE\DOLUTEGRAVIR SODIUM\LAMIVUDINE
  50. FIBERCON [Concomitant]
     Active Substance: CALCIUM POLYCARBOPHIL
  51. FUROSEMIDE. [Concomitant]
     Active Substance: FUROSEMIDE
     Indication: PERIPHERAL SWELLING
     Dosage: UNK
     Dates: start: 20160912
  52. CIPRO [Concomitant]
     Active Substance: CIPROFLOXACIN HYDROCHLORIDE
  53. MYCAMINE [Concomitant]
     Active Substance: MICAFUNGIN SODIUM
  54. LOTRISONE [Concomitant]
     Active Substance: BETAMETHASONE DIPROPIONATE\CLOTRIMAZOLE
  55. KETOCONAZOLE. [Concomitant]
     Active Substance: KETOCONAZOLE
  56. HEMORRHOIDAL HC [HYDROCORTISONE ACETATE] [Concomitant]
  57. CEPHALEXIN [CEFALEXIN] [Concomitant]
     Active Substance: CEPHALEXIN
  58. ENDOCET [Concomitant]
     Active Substance: ACETAMINOPHEN\OXYCODONE HYDROCHLORIDE
  59. FLUCONAZOLE. [Concomitant]
     Active Substance: FLUCONAZOLE
  60. BENADRYL [Concomitant]
     Active Substance: DIPHENHYDRAMINE HYDROCHLORIDE
  61. ALBUMIN [Concomitant]
     Active Substance: ALBUMIN HUMAN
  62. DAPSONE. [Concomitant]
     Active Substance: DAPSONE
  63. IMODIUM A-D [Concomitant]
     Active Substance: LOPERAMIDE HYDROCHLORIDE
  64. NIZORAL [Concomitant]
     Active Substance: KETOCONAZOLE
  65. ZOFRAN [Concomitant]
     Active Substance: ONDANSETRON HYDROCHLORIDE
  66. ANDROGEL [Concomitant]
     Active Substance: TESTOSTERONE
  67. DIPHENHYDRAMINE HCL;LIDOCAINE;NYSTATIN [Concomitant]
  68. BETAMETHASONE. [Concomitant]
     Active Substance: BETAMETHASONE
  69. ECONAZOLE. [Concomitant]
     Active Substance: ECONAZOLE NITRATE
  70. IRON [Concomitant]
     Active Substance: IRON
  71. MUPIROCIN. [Concomitant]
     Active Substance: MUPIROCIN
  72. FIBER LAX [Concomitant]
     Active Substance: CALCIUM POLYCARBOPHIL
  73. PNV PLUS [Concomitant]
  74. TRUVADA [Suspect]
     Active Substance: EMTRICITABINE\TENOFOVIR DISOPROXIL FUMARATE
     Dosage: 1 DOSAGE FORM, QD
     Route: 048
     Dates: start: 201503, end: 20160602
  75. STRIBILD [Suspect]
     Active Substance: COBICISTAT\ELVITEGRAVIR\EMTRICITABINE\TENOFOVIR DISOPROXIL FUMARATE
     Indication: HIV INFECTION
     Dosage: UNK
     Route: 065
     Dates: start: 2015, end: 2015
  76. PREZCOBIX [Concomitant]
     Active Substance: COBICISTAT\DARUNAVIR ETHANOLATE
  77. CHOLESTYRAMINE. [Concomitant]
     Active Substance: CHOLESTYRAMINE
  78. ZYVOX [Concomitant]
     Active Substance: LINEZOLID
  79. THERAGRAN [VITAMINS NOS] [Concomitant]
  80. DRONABINOL. [Concomitant]
     Active Substance: DRONABINOL
  81. PERMETHRIN. [Concomitant]
     Active Substance: PERMETHRIN
  82. VERAPAMIL [Concomitant]
     Active Substance: VERAPAMIL HYDROCHLORIDE
  83. AUGMENTIN [Concomitant]
     Active Substance: AMOXICILLIN\CLAVULANATE POTASSIUM
  84. PREPLUS B12 [Concomitant]
  85. BICILLIN L-A [Concomitant]
     Active Substance: PENICILLIN G BENZATHINE
     Dosage: UNK
     Dates: start: 20150921, end: 20150921
  86. DIFLUCAN [Concomitant]
     Active Substance: FLUCONAZOLE
  87. MINOCYCLINE [Concomitant]
     Active Substance: MINOCYCLINE HYDROCHLORIDE
  88. ARANESP [Concomitant]
     Active Substance: DARBEPOETIN ALFA
  89. POTASSIUM CHLORIDE. [Concomitant]
     Active Substance: POTASSIUM CHLORIDE
  90. ISENTRESS [Concomitant]
     Active Substance: RALTEGRAVIR POTASSIUM
  91. COBICISTAT;DARUNAVIR [Concomitant]
     Active Substance: COBICISTAT\DARUNAVIR ETHANOLATE
  92. ZITHROMAX [Concomitant]
     Active Substance: AZITHROMYCIN DIHYDRATE
  93. MAXIPIME [Concomitant]
     Active Substance: CEFEPIME HYDROCHLORIDE
  94. PEG 3350 + ELECTROLYTES [Concomitant]
  95. CLOBETASOL [Concomitant]
     Active Substance: CLOBETASOL
  96. TAB A VITE [Concomitant]
  97. FLUOCINONIDE-E [Concomitant]
     Active Substance: FLUOCINONIDE
  98. DUONEB [Concomitant]
     Active Substance: ALBUTEROL SULFATE\IPRATROPIUM BROMIDE

REACTIONS (14)
  - Osteopenia [Not Recovered/Not Resolved]
  - Emotional distress [Unknown]
  - Anhedonia [Unknown]
  - Asthenia [Not Recovered/Not Resolved]
  - Bone density decreased [Unknown]
  - Economic problem [Unknown]
  - Fatigue [Not Recovered/Not Resolved]
  - Acute kidney injury [Unknown]
  - Renal failure [Unknown]
  - Chronic kidney disease [Not Recovered/Not Resolved]
  - Anxiety [Unknown]
  - Musculoskeletal pain [Not Recovered/Not Resolved]
  - Osteoporosis [Not Recovered/Not Resolved]
  - Pain [Unknown]

NARRATIVE: CASE EVENT DATE: 2015
